FAERS Safety Report 10836396 (Version 1)
Quarter: 2015Q1

REPORT INFORMATION
  Report Type: Spontaneous
  Country: US (occurrence: None)
  Receive Date: 20150218
  Receipt Date: 20150218
  Transmission Date: 20150721
  Serious: Yes (Hospitalization, Other)
  Sender: FDA-Public Use
  Company Number: US-ZYDUS-006593

PATIENT
  Age: 15 Year
  Sex: Male

DRUGS (1)
  1. AMIODARONE (AMIODARONE) [Suspect]
     Active Substance: AMIODARONE
     Indication: VENTRICULAR TACHYCARDIA

REACTIONS (15)
  - Lip swelling [None]
  - Pulseless electrical activity [None]
  - Pulse absent [None]
  - Swelling face [None]
  - Haemodynamic instability [None]
  - Ventricular tachycardia [None]
  - Cardiac arrest [None]
  - Electrocardiogram ST segment elevation [None]
  - Anaphylactic shock [None]
  - Mental status changes [None]
  - Ventricular dysfunction [None]
  - Swollen tongue [None]
  - Peripheral coldness [None]
  - Skin discolouration [None]
  - Poor peripheral circulation [None]
